FAERS Safety Report 7388802-3 (Version None)
Quarter: 2011Q2

REPORT INFORMATION
  Report Type: 
  Country: None (occurrence: None)
  Receive Date: 20110401
  Receipt Date: 20110307
  Transmission Date: 20111010
  Serious: No
  Sender: FDA-Public Use
  Company Number: US-B.I. PHARMACEUTICALS,INC./RIDGEFIELD-2011-BP-07144BP

PATIENT
  Sex: Female

DRUGS (5)
  1. PRADAXA [Suspect]
     Route: 048
  2. AMIODARONE [Concomitant]
     Indication: ATRIAL FIBRILLATION
     Route: 048
  3. LOSARTAN POTASSIUM [Concomitant]
     Indication: HYPERTENSION
     Route: 048
  4. PRADAXA [Suspect]
     Indication: ATRIAL FIBRILLATION
     Route: 048
     Dates: start: 20110201
  5. CELEBREX [Concomitant]
     Indication: ARTHRITIS
     Route: 048

REACTIONS (4)
  - DIZZINESS [None]
  - CONTUSION [None]
  - FALL [None]
  - HEAD INJURY [None]
